FAERS Safety Report 5595540-6 (Version None)
Quarter: 2008Q1

REPORT INFORMATION
  Report Type: 
  Country: None (occurrence: None)
  Receive Date: 20080116
  Receipt Date: 20080116
  Transmission Date: 20080703
  Serious: No
  Sender: FDA-Public Use
  Company Number: None

PATIENT
  Age: 84 Year
  Sex: Male

DRUGS (2)
  1. METOPROLOL TARTRATE [Suspect]
     Dosage: 100MG EVERY DAY PO
     Route: 048
     Dates: start: 20070125, end: 20070524
  2. ISOSORBIDE DINITRATE [Suspect]
     Dosage: 10MG BID PO
     Route: 048
     Dates: start: 20070321, end: 20070524

REACTIONS (3)
  - BLOOD PRESSURE SYSTOLIC DECREASED [None]
  - DIZZINESS [None]
  - HYPOTENSION [None]
